FAERS Safety Report 6596142-5 (Version None)
Quarter: 2010Q1

REPORT INFORMATION
  Report Type: 
  Country: None (occurrence: None)
  Receive Date: 20100216
  Receipt Date: 20100202
  Transmission Date: 20100710
  Serious: Yes (Hospitalization, Other)
  Sender: FDA-Public Use
  Company Number: 1-21395323

PATIENT
  Age: 11 Year
  Sex: Female
  Weight: 32.8858 kg

DRUGS (4)
  1. BACTRIM PEDIATRIC [Suspect]
     Indication: URINARY TRACT INFECTION
     Dosage: 2 TEASPOONFULS, TWICE DAILY, ORAL
     Route: 048
     Dates: start: 20090913, end: 20090920
  2. METHOTREXATE SODIUM [Suspect]
     Dosage: 2.5 MG, EVERY WEEK
     Dates: start: 20040101
  3. HUMIRA [Suspect]
     Dosage: 20 MG, EVERY OTHER WEEK, INTRAVENOUS
     Route: 042
     Dates: start: 20081201
  4. FOLIC ACID [Concomitant]

REACTIONS (9)
  - ABDOMINAL PAIN [None]
  - ARTHRALGIA [None]
  - DIARRHOEA [None]
  - DRUG HYPERSENSITIVITY [None]
  - HEADACHE [None]
  - PYREXIA [None]
  - RASH [None]
  - RASH PRURITIC [None]
  - VOMITING [None]
